FAERS Safety Report 13665864 (Version 1)
Quarter: 2017Q2

REPORT INFORMATION
  Report Type: Spontaneous
  Country: JP (occurrence: JP)
  Receive Date: 20170619
  Receipt Date: 20170619
  Transmission Date: 20170830
  Serious: Yes (Hospitalization, Other)
  Sender: FDA-Public Use
  Company Number: JP-MYLANLABS-2017M1036389

PATIENT

DRUGS (1)
  1. OLANZAPINE. [Suspect]
     Active Substance: OLANZAPINE
     Indication: PANIC DISORDER
     Dosage: 20MG DAILY
     Route: 065

REACTIONS (6)
  - Hypernatraemia [Recovered/Resolved]
  - Neuroleptic malignant syndrome [Recovered/Resolved]
  - Hyperglycaemic hyperosmolar nonketotic syndrome [Recovered/Resolved]
  - Encephalitis [Recovered/Resolved]
  - Encephalopathy [Recovered/Resolved]
  - Central nervous system lesion [Recovered/Resolved]
